FAERS Safety Report 8054463-3 (Version None)
Quarter: 2012Q1

REPORT INFORMATION
  Report Type: 
  Country: None (occurrence: None)
  Receive Date: 20120118
  Receipt Date: 20120109
  Transmission Date: 20120608
  Serious: Yes (Hospitalization, Disabling)
  Sender: FDA-Public Use
  Company Number: US-MERCK-1107USA03588

PATIENT
  Age: 51 Year
  Sex: Female
  Weight: 53 kg

DRUGS (7)
  1. FOSAMAX [Suspect]
     Indication: OSTEOPENIA
     Route: 048
     Dates: start: 20010101, end: 20060201
  2. BONIVA [Suspect]
     Indication: OSTEOPENIA
     Route: 048
     Dates: start: 20060201, end: 20091201
  3. FOSAMAX [Suspect]
     Indication: OSTEOPOROSIS
     Route: 048
     Dates: start: 20010101, end: 20060201
  4. ACTONEL [Suspect]
     Indication: OSTEOPOROSIS
     Route: 065
     Dates: start: 20020701, end: 20030701
  5. BONIVA [Suspect]
     Indication: OSTEOPOROSIS
     Route: 048
     Dates: start: 20060201, end: 20091201
  6. ACTONEL [Suspect]
     Indication: OSTEOPENIA
     Route: 065
     Dates: start: 20020701, end: 20030701
  7. EVISTA [Concomitant]
     Indication: OSTEOPOROSIS
     Route: 065

REACTIONS (40)
  - ATROPHIC VULVOVAGINITIS [None]
  - FOOT DEFORMITY [None]
  - PERIODONTAL DISEASE [None]
  - MOUTH ULCERATION [None]
  - CARDIAC MURMUR [None]
  - HOT FLUSH [None]
  - BRUXISM [None]
  - BLOOD POTASSIUM INCREASED [None]
  - C-TELOPEPTIDE [None]
  - ORAL DISORDER [None]
  - FOOT FRACTURE [None]
  - HAND FRACTURE [None]
  - FRACTURE MALUNION [None]
  - WEIGHT INCREASED [None]
  - SENSITIVITY OF TEETH [None]
  - MUSCLE HYPERTROPHY [None]
  - MEASLES [None]
  - BUNION [None]
  - BLOOD CHOLESTEROL INCREASED [None]
  - INSOMNIA [None]
  - IMPAIRED HEALING [None]
  - DIVERTICULITIS [None]
  - JAW DISORDER [None]
  - EAR PAIN [None]
  - NOCTURIA [None]
  - MUMPS [None]
  - OSTEONECROSIS OF JAW [None]
  - ROAD TRAFFIC ACCIDENT [None]
  - INFLUENZA [None]
  - LIBIDO DECREASED [None]
  - FATIGUE [None]
  - DEPRESSION [None]
  - THERMAL BURN [None]
  - ACNE [None]
  - ADVERSE EVENT [None]
  - HYPERTENSION [None]
  - ORAL TORUS [None]
  - ONYCHOPHAGIA [None]
  - NEPHROLITHIASIS [None]
  - VARICELLA [None]
